FAERS Safety Report 11908551 (Version 11)
Quarter: 2016Q2

REPORT INFORMATION
  Report Type: Spontaneous
  Country: GB (occurrence: GB)
  Receive Date: 20160111
  Receipt Date: 20160627
  Transmission Date: 20160815
  Serious: Yes (Hospitalization, Other)
  Sender: FDA-Public Use
  Company Number: GB-MYLANLABS-2016M1000570

PATIENT

DRUGS (12)
  1. OXALIPLATIN. [Suspect]
     Active Substance: OXALIPLATIN
     Indication: PRODUCT USED FOR UNKNOWN INDICATION
     Dosage: UNK
     Route: 065
  2. RIVAROXABAN [Suspect]
     Active Substance: RIVAROXABAN
     Indication: PRODUCT USED FOR UNKNOWN INDICATION
     Route: 065
  3. IRINOTECAN [Concomitant]
     Active Substance: IRINOTECAN
     Dosage: UNK
  4. AVASTIN [Suspect]
     Active Substance: BEVACIZUMAB
     Indication: PRODUCT USED FOR UNKNOWN INDICATION
     Route: 065
  5. CAPECITABINE. [Suspect]
     Active Substance: CAPECITABINE
     Indication: PRODUCT USED FOR UNKNOWN INDICATION
     Dosage: UNK
     Route: 065
  6. RIVAROXABAN [Suspect]
     Active Substance: RIVAROXABAN
     Indication: PRODUCT USED FOR UNKNOWN INDICATION
     Dosage: UNK
     Route: 065
  7. DEXAMETHASON [Concomitant]
     Active Substance: DEXAMETHASONE
  8. OXALIPLATIN. [Suspect]
     Active Substance: OXALIPLATIN
     Indication: PRODUCT USED FOR UNKNOWN INDICATION
     Route: 065
  9. AVASTIN [Suspect]
     Active Substance: BEVACIZUMAB
     Indication: PRODUCT USED FOR UNKNOWN INDICATION
     Dosage: UNK
     Route: 065
  10. METOCLOPRAMIDE. [Concomitant]
     Active Substance: METOCLOPRAMIDE
     Dosage: UNK
  11. DEXAMETHASON                       /00016001/ [Concomitant]
     Active Substance: DEXAMETHASONE
     Dosage: UNK
  12. LOPERAMIDE [Concomitant]
     Active Substance: LOPERAMIDE
     Dosage: UNK

REACTIONS (66)
  - Hangover [Unknown]
  - Balance disorder [Unknown]
  - Middle insomnia [Unknown]
  - Urinary tract infection [Unknown]
  - Catheter site bruise [Unknown]
  - Cold sweat [Unknown]
  - Renal pain [Unknown]
  - Dizziness [Unknown]
  - Back pain [Unknown]
  - Weight decreased [Unknown]
  - Feeling hot [Unknown]
  - Hallucination [Unknown]
  - Hypoaesthesia [Unknown]
  - Fine motor skill dysfunction [Unknown]
  - Blood pressure increased [Unknown]
  - Arthralgia [Unknown]
  - Contusion [Unknown]
  - Menopause [Unknown]
  - Gastrointestinal inflammation [Unknown]
  - Muscle spasms [Unknown]
  - Pelvic pain [Recovered/Resolved]
  - Malaise [Unknown]
  - Hyperhidrosis [Unknown]
  - Dysgraphia [Unknown]
  - Blood urine present [Unknown]
  - Intestinal obstruction [Unknown]
  - Paraesthesia [Unknown]
  - Constipation [Unknown]
  - Peripheral coldness [Unknown]
  - Ill-defined disorder [Unknown]
  - Pallor [Unknown]
  - Dysuria [Unknown]
  - Abdominal mass [Unknown]
  - Protein urine [Unknown]
  - Nausea [Unknown]
  - Mouth ulceration [Recovered/Resolved]
  - Dysgeusia [Unknown]
  - Haematuria [Unknown]
  - Oropharyngeal pain [Unknown]
  - Sleep disorder [Unknown]
  - Speech disorder [Unknown]
  - Palmar-plantar erythrodysaesthesia syndrome [Unknown]
  - Ureteric obstruction [Unknown]
  - Hot flush [Unknown]
  - Neuropathy peripheral [Not Recovered/Not Resolved]
  - Decreased appetite [Unknown]
  - Dry skin [Unknown]
  - Confusional state [Unknown]
  - Dyspnoea exertional [Unknown]
  - White blood cells urine positive [Unknown]
  - Tremor [Unknown]
  - Abdominal pain [Unknown]
  - Fatigue [Not Recovered/Not Resolved]
  - Vomiting [Unknown]
  - Discomfort [Unknown]
  - Night sweats [Unknown]
  - Memory impairment [Unknown]
  - Temperature intolerance [Not Recovered/Not Resolved]
  - Medical device pain [Unknown]
  - Diarrhoea [Unknown]
  - Pulmonary thrombosis [Unknown]
  - Motion sickness [Unknown]
  - Urinary retention [Unknown]
  - Pain in extremity [Unknown]
  - Pain [Unknown]
  - Skin fissures [Unknown]
